FAERS Safety Report 7420862-3 (Version None)
Quarter: 2011Q2

REPORT INFORMATION
  Report Type: 
  Country: None (occurrence: None)
  Receive Date: 20110418
  Receipt Date: 20110412
  Transmission Date: 20111010
  Serious: Yes (Hospitalization, Other)
  Sender: FDA-Public Use
  Company Number: US-ROCHE-751365

PATIENT
  Sex: Male
  Weight: 77.1 kg

DRUGS (1)
  1. ACCUTANE [Suspect]
     Indication: ACNE
     Dosage: CONSUMED INTERMITTENTLY
     Route: 065
     Dates: start: 19870101, end: 19960101

REACTIONS (9)
  - BIPOLAR DISORDER [None]
  - CROHN'S DISEASE [None]
  - SUICIDAL IDEATION [None]
  - INFLAMMATORY BOWEL DISEASE [None]
  - ANXIETY [None]
  - DEPRESSION [None]
  - COLITIS ULCERATIVE [None]
  - ORAL HERPES [None]
  - GASTROOESOPHAGEAL REFLUX DISEASE [None]
